FAERS Safety Report 5239386-7 (Version None)
Quarter: 2007Q1

REPORT INFORMATION
  Report Type: 
  Country: None (occurrence: None)
  Receive Date: 20061208
  Receipt Date: 20060531
  Transmission Date: 20070707
  Serious: Yes (Other)
  Sender: FDA-Public Use
  Company Number: 2006UW10493

PATIENT
  Age: 83 Year
  Sex: Male
  Weight: 68.038 kg

DRUGS (3)
  1. CRESTOR [Suspect]
     Indication: BLOOD CHOLESTEROL INCREASED
     Dosage: 5 MG QD PO
     Route: 048
     Dates: start: 20060401
  2. HEART MEDICINE [Concomitant]
  3. PAIN MEDICINE [Concomitant]

REACTIONS (3)
  - ABDOMINAL PAIN UPPER [None]
  - GENITAL PAIN [None]
  - HEADACHE [None]
